FAERS Safety Report 8845291 (Version 1)
Quarter: 2012Q4

REPORT INFORMATION
  Report Type: Spontaneous
  Country: DK (occurrence: None)
  Receive Date: 20121001
  Receipt Date: 20121001
  Transmission Date: 20130627
  Serious: Yes (Other)
  Sender: FDA-Public Use
  Company Number: 2012033458

PATIENT
  Age: 21 Year
  Sex: Male

DRUGS (2)
  1. INTRAVENOUS IMMUNOGLOBULIN (IVIG) (IMMUNE GLOBULIN INTRAVENOUS (HUMAN) 10% LIQUID) [Suspect]
     Indication: NARCOLEPSY
     Dosage: 1 G/KG/DAY ADMINISTERED FOR 2 DAYS
     Route: 042
     Dates: start: 20110214
  2. INTRAVENOUS IMMUNOGLOBULIN (IVIG) (IMMUNE GLOBULIN INTRAVENOUS (HUMAN) 10% LIQUID) [Suspect]
     Indication: CATAPLEXY
     Dosage: 1 G/KG/DAY ADMINISTERED FOR 2 DAYS
     Route: 042
     Dates: start: 20110214

REACTIONS (3)
  - White blood cell count increased [None]
  - Headache [None]
  - Drug ineffective for unapproved indication [None]
